FAERS Safety Report 7349015-4 (Version None)
Quarter: 2011Q1

REPORT INFORMATION
  Report Type: 
  Country: None (occurrence: None)
  Receive Date: 20110303
  Receipt Date: 20110215
  Transmission Date: 20110831
  Serious: Yes (Life-Threatening)
  Sender: FDA-Public Use
  Company Number: TPA2010A05084

PATIENT
  Age: 85 Year
  Sex: Female

DRUGS (6)
  1. COLCHICINE [Suspect]
     Indication: GOUT
     Dosage: 0.5 MG (0.5 MG, 1IN 1 D) PER ORAL
     Route: 048
     Dates: start: 20100628, end: 20100901
  2. PRETERAX (INDAPAMIDE, PERINODPRIL ERBUMINE) [Concomitant]
  3. CALCIPARTINE (HEPARIN CALCIUM) [Concomitant]
  4. ADENURIC (FEBUXOSTAT) [Suspect]
     Indication: HYPERURICAEMIA
     Dosage: 80 MG (80 MG, 1 IN 1 D) PER ORAL
     Route: 048
     Dates: start: 20100709, end: 20100918
  5. ATORVASTATIN CALCIUM [Concomitant]
  6. KARDEGIC (ACETYLSALICYLATE LYSINE) [Concomitant]

REACTIONS (1)
  - ISCHAEMIC STROKE [None]
